FAERS Safety Report 24213850 (Version 1)
Quarter: 2024Q3

REPORT INFORMATION
  Report Type: Spontaneous
  Country: US (occurrence: None)
  Receive Date: 20240814
  Receipt Date: 20240814
  Transmission Date: 20241017
  Serious: Yes (Life-Threatening, Hospitalization)
  Sender: Public
  Company Number: None

PATIENT
  Age: 77 Year
  Sex: Male
  Weight: 109 kg

DRUGS (9)
  1. DAROLUTAMIDE [Suspect]
     Active Substance: DAROLUTAMIDE
     Indication: Hormone-refractory prostate cancer
     Dosage: FREQUENCY : TWICE A DAY;?
     Route: 048
     Dates: start: 20240424, end: 20240721
  2. Apixaban 5 mg BID [Concomitant]
  3. Depakote 250mg BID [Concomitant]
  4. Magnesium oxide 400mg daily [Concomitant]
  5. Metoprolol 12.5mg BID [Concomitant]
  6. Sodium zirocnium cyclosilicate (Lokelma) 10g QOD [Concomitant]
  7. Tamsulosin 0.4mg daily [Concomitant]
  8. Trazodone 50mg QHS [Concomitant]
  9. Turmeric 1000mg daily [Concomitant]

REACTIONS (7)
  - Seizure [None]
  - Fall [None]
  - Rib fracture [None]
  - Traumatic liver injury [None]
  - Haemothorax [None]
  - Perinephric collection [None]
  - Haemorrhage [None]

NARRATIVE: CASE EVENT DATE: 20240711
